FAERS Safety Report 23796312 (Version 1)
Quarter: 2024Q2

REPORT INFORMATION
  Report Type: Spontaneous
  Country: US (occurrence: US)
  Receive Date: 20240430
  Receipt Date: 20240430
  Transmission Date: 20240716
  Serious: Yes (Life-Threatening, Hospitalization)
  Sender: FDA-Public Use
  Company Number: US-ENDO PHARMACEUTICALS INC-2024-001834

PATIENT
  Age: 35 Year
  Sex: Female

DRUGS (7)
  1. KETALAR [Suspect]
     Active Substance: KETAMINE HYDROCHLORIDE
     Indication: Anaesthesia procedure
     Dosage: 0.35 MILLIGRAM/KILOGRAM, UNKNOWN (IN 0.9% SODIUM CHLORIDE, INDUCTION)
     Route: 040
  2. KETALAR [Suspect]
     Active Substance: KETAMINE HYDROCHLORIDE
     Dosage: 0.25 MILLIGRAM/KILOGRAM, INFUSION AFTER INDUCTION (IN 0.9% SODIUM CHLORIDE)
     Route: 042
  3. CEFAZOLIN [Concomitant]
     Active Substance: CEFAZOLIN
     Indication: Anaesthesia procedure
     Dosage: UNK UNKNOWN, UNKNOWN
     Route: 065
  4. PROPOFOL [Concomitant]
     Active Substance: PROPOFOL
     Indication: Anaesthesia procedure
     Dosage: UNK UNKNOWN, UNKNOWN
     Route: 065
  5. ROCURONIUM [Concomitant]
     Active Substance: ROCURONIUM BROMIDE
     Indication: Anaesthesia procedure
     Dosage: UNK UNKNOWN, UNKNOWN
     Route: 065
  6. LIDOCAINE [Concomitant]
     Active Substance: LIDOCAINE
     Indication: Anaesthesia procedure
     Dosage: UNK UNKNOWN, UNKNOWN
     Route: 065
  7. FENTANYL [Concomitant]
     Active Substance: FENTANYL\FENTANYL CITRATE
     Indication: Anaesthesia procedure
     Dosage: UNK UNKNOWN, UNKNOWN
     Route: 065

REACTIONS (1)
  - Anaphylactic shock [Unknown]
